FAERS Safety Report 15288867 (Version 1)
Quarter: 2018Q3

REPORT INFORMATION
  Report Type: Spontaneous
  Country: US (occurrence: US)
  Receive Date: 20180802
  Receipt Date: 20180802
  Transmission Date: 20181010
  Serious: No
  Sender: FDA-Public Use
  Company Number: None

PATIENT
  Age: 70 Year
  Sex: Male
  Weight: 110.25 kg

DRUGS (2)
  1. VALSARTAN/HCT 160/25MG [Suspect]
     Active Substance: HYDROCHLOROTHIAZIDE\VALSARTAN
     Indication: HYPERTENSION
     Route: 048
     Dates: start: 20180701, end: 20180802
  2. VALSARTAN/HCT 160/25MG [Suspect]
     Active Substance: HYDROCHLOROTHIAZIDE\VALSARTAN
     Indication: CARDIAC DISORDER
     Route: 048
     Dates: start: 20180701, end: 20180802

REACTIONS (4)
  - Chest pain [None]
  - Fatigue [None]
  - Dizziness [None]
  - Frequent bowel movements [None]

NARRATIVE: CASE EVENT DATE: 20180702
